FAERS Safety Report 5366871-X (Version None)
Quarter: 2007Q2

REPORT INFORMATION
  Report Type: 
  Country: None (occurrence: None)
  Receive Date: 20070622
  Receipt Date: 20061110
  Transmission Date: 20071010
  Serious: No
  Sender: FDA-Public Use
  Company Number: US-ASTRAZENECA-2006UW23427

PATIENT
  Age: 57 Year
  Sex: Female
  Weight: 65.8 kg

DRUGS (4)
  1. RHINOCORT [Suspect]
     Indication: LUNG DISORDER
     Route: 045
  2. ADVAIR DISKETTE [Suspect]
  3. FUROSEMIDE [Concomitant]
  4. CELEXA [Concomitant]

REACTIONS (3)
  - PARAESTHESIA [None]
  - TREMOR [None]
  - VISION BLURRED [None]
